FAERS Safety Report 16668549 (Version 1)
Quarter: 2019Q3

REPORT INFORMATION
  Report Type: Report from Study
  Country: IT (occurrence: IT)
  Receive Date: 20190805
  Receipt Date: 20190805
  Transmission Date: 20191004
  Serious: Yes (Hospitalization)
  Sender: FDA-Public Use
  Company Number: IT-NOVOPROD-673067

PATIENT
  Age: 17 Year
  Sex: Male

DRUGS (1)
  1. NOVOEIGHT 2000 IU [Suspect]
     Active Substance: TUROCTOCOG ALFA
     Indication: HAEMATOMA
     Dosage: UNK
     Route: 065

REACTIONS (2)
  - Neck pain [Unknown]
  - Headache [Unknown]
